FAERS Safety Report 13647860 (Version 1)
Quarter: 2017Q2

REPORT INFORMATION
  Report Type: Spontaneous
  Country: US (occurrence: US)
  Receive Date: 20170613
  Receipt Date: 20170613
  Transmission Date: 20170830
  Serious: No
  Sender: FDA-Public Use
  Company Number: US-GLAXOSMITHKLINE-US2017087607

PATIENT
  Age: 44 Year
  Sex: Female

DRUGS (1)
  1. ALLI [Suspect]
     Active Substance: ORLISTAT
     Indication: WEIGHT LOSS DIET
     Dosage: UNK
     Route: 048
     Dates: start: 201705, end: 20170604

REACTIONS (4)
  - Treatment noncompliance [Unknown]
  - Abdominal pain upper [Not Recovered/Not Resolved]
  - Rectal discharge [Not Recovered/Not Resolved]
  - Anal incontinence [Not Recovered/Not Resolved]
